FAERS Safety Report 11883230 (Version 9)
Quarter: 2017Q4

REPORT INFORMATION
  Report Type: Report from Study
  Country: SG (occurrence: SG)
  Receive Date: 20151231
  Receipt Date: 20171102
  Transmission Date: 20180320
  Serious: Yes (Death, Hospitalization)
  Sender: FDA-Public Use
  Company Number: PHHO2015SG013626

PATIENT
  Age: 77 Year
  Sex: Male
  Weight: 46.2 kg

DRUGS (5)
  1. FUROSEMIDE. [Suspect]
     Active Substance: FUROSEMIDE
     Indication: PRODUCT USED FOR UNKNOWN INDICATION
     Route: 065
  2. BISOPROLOL [Suspect]
     Active Substance: BISOPROLOL
     Indication: PRODUCT USED FOR UNKNOWN INDICATION
     Dosage: 1.25 MG, OM
     Route: 048
     Dates: end: 20160104
  3. FLUOXETINE [Suspect]
     Active Substance: FLUOXETINE HYDROCHLORIDE
     Indication: PRODUCT USED FOR UNKNOWN INDICATION
     Route: 065
  4. EGF816 [Suspect]
     Active Substance: INVESTIGATIONAL PRODUCT
     Dosage: 150 MG, QD (OM)
     Route: 048
     Dates: start: 20150902, end: 20151221
  5. EGF816 [Suspect]
     Active Substance: INVESTIGATIONAL PRODUCT
     Indication: NEOPLASM
     Dosage: 150 MG, QD (OM)
     Route: 048
     Dates: start: 20150709, end: 20150827

REACTIONS (5)
  - Pneumonia [Recovered/Resolved]
  - Fluid overload [Recovered/Resolved]
  - Sepsis [Fatal]
  - Femur fracture [Not Recovered/Not Resolved]
  - Non-small cell lung cancer [Fatal]

NARRATIVE: CASE EVENT DATE: 20150827
